FAERS Safety Report 5191204-1 (Version None)
Quarter: 2006Q4

REPORT INFORMATION
  Report Type: 
  Country: None (occurrence: None)
  Receive Date: 20061220
  Receipt Date: 20061220
  Transmission Date: 20070319
  Serious: Yes (Hospitalization)
  Sender: FDA-Public Use
  Company Number: None

PATIENT
  Age: 65 Year
  Sex: Female
  Weight: 122.1 kg

DRUGS (6)
  1. WARFARIN SODIUM [Suspect]
     Indication: PULMONARY EMBOLISM
     Dosage: 2.5 ALT 5 MG PO
     Route: 048
     Dates: start: 20060906
  2. ALBUTEROL [Concomitant]
  3. PRILOSEC [Concomitant]
  4. XANAX [Concomitant]
  5. ANUSOL [Concomitant]
  6. LORTAB [Concomitant]

REACTIONS (2)
  - HAEMORRHOIDAL HAEMORRHAGE [None]
  - LOWER GASTROINTESTINAL HAEMORRHAGE [None]
